FAERS Safety Report 9072044 (Version 1)
Quarter: 2013Q1

REPORT INFORMATION
  Report Type: Spontaneous
  Country: BR (occurrence: BR)
  Receive Date: 20130129
  Receipt Date: 20130129
  Transmission Date: 20140127
  Serious: Yes (Other)
  Sender: FDA-Public Use
  Company Number: BR-PFIZER INC-2013029742

PATIENT
  Age: 34 Year
  Sex: Female
  Weight: 85 kg

DRUGS (8)
  1. GEODON [Suspect]
     Indication: SCHIZOPHRENIA
     Dosage: UNK
     Route: 048
     Dates: start: 2012
  2. SEROQUEL [Suspect]
     Indication: SCHIZOPHRENIA
     Dosage: 700 MG/DAY
     Route: 048
     Dates: start: 2010, end: 2010
  3. SEROQUEL [Suspect]
     Indication: SCHIZOAFFECTIVE DISORDER
     Dosage: 400 MG/DAY
     Route: 048
     Dates: start: 2010, end: 2010
  4. SEROQUEL [Suspect]
     Indication: ANXIETY
     Dosage: 200 MG/DAY
     Route: 048
     Dates: start: 201010, end: 201101
  5. HALOPERIDOL [Suspect]
     Indication: SCHIZOAFFECTIVE DISORDER
     Dosage: 2 MG, 1X/DAY
     Route: 048
     Dates: start: 2011, end: 2012
  6. FLUOXETINE [Suspect]
     Indication: SCHIZOAFFECTIVE DISORDER
     Dosage: 20 MG, 1X/DAY
     Route: 048
     Dates: start: 2011, end: 2012
  7. TRILEPTAL [Concomitant]
     Indication: SCHIZOAFFECTIVE DISORDER
     Dosage: UNK
     Route: 048
     Dates: start: 2008, end: 201101
  8. RIVOTRIL [Concomitant]
     Indication: SCHIZOAFFECTIVE DISORDER
     Dosage: 0.5 MG /DAY

REACTIONS (12)
  - Withdrawal syndrome [Not Recovered/Not Resolved]
  - Mania [Not Recovered/Not Resolved]
  - Confusional state [Not Recovered/Not Resolved]
  - Depression [Not Recovered/Not Resolved]
  - Mood altered [Not Recovered/Not Resolved]
  - Apathy [Not Recovered/Not Resolved]
  - Eye movement disorder [Not Recovered/Not Resolved]
  - Anxiety [Not Recovered/Not Resolved]
  - Insomnia [Not Recovered/Not Resolved]
  - Myalgia [Not Recovered/Not Resolved]
  - Diarrhoea [Not Recovered/Not Resolved]
  - Malaise [Not Recovered/Not Resolved]
